FAERS Safety Report 10560584 (Version 7)
Quarter: 2016Q3

REPORT INFORMATION
  Report Type: Spontaneous
  Country: US (occurrence: US)
  Receive Date: 20141103
  Receipt Date: 20160810
  Transmission Date: 20161109
  Serious: Yes (Hospitalization)
  Sender: FDA-Public Use
  Company Number: US-ACTELION-A-NJ2014-106842

PATIENT
  Age: 67 Year
  Sex: Female

DRUGS (16)
  1. DAPSON [Concomitant]
     Active Substance: DAPSONE
  2. NIACIN. [Concomitant]
     Active Substance: NIACIN
  3. PAXIL [Concomitant]
     Active Substance: PAROXETINE HYDROCHLORIDE
  4. COREG [Concomitant]
     Active Substance: CARVEDILOL
  5. NORVASC [Concomitant]
     Active Substance: AMLODIPINE BESYLATE
  6. OPSUMIT [Suspect]
     Active Substance: MACITENTAN
     Indication: PULMONARY HYPERTENSION
     Dosage: 10 MG
     Route: 048
     Dates: start: 20140924, end: 20141120
  7. MYCOPHENOLATE [Concomitant]
     Active Substance: MYCOPHENOLIC ACID
  8. TORSEMIDE. [Concomitant]
     Active Substance: TORSEMIDE
  9. GUAIFENESIN. [Concomitant]
     Active Substance: GUAIFENESIN
  10. PAROXETINE. [Concomitant]
     Active Substance: PAROXETINE
  11. ASPIRIN. [Concomitant]
     Active Substance: ASPIRIN
  12. SIMVASTIN [Concomitant]
     Active Substance: SIMVASTATIN
  13. OPSUMIT [Suspect]
     Active Substance: MACITENTAN
     Dosage: 10 MG, UNK
     Route: 048
     Dates: start: 20141223, end: 20150113
  14. PREDNISONE. [Concomitant]
     Active Substance: PREDNISONE
  15. SILDENAFIL. [Concomitant]
     Active Substance: SILDENAFIL
  16. SOTALOL. [Concomitant]
     Active Substance: SOTALOL

REACTIONS (8)
  - Rales [Recovered/Resolved]
  - Atrial flutter [Recovered/Resolved]
  - Concomitant disease aggravated [Recovered/Resolved]
  - Jugular vein distension [Recovered/Resolved]
  - Dysphagia [Unknown]
  - Tachycardia [Not Recovered/Not Resolved]
  - Oedema [Recovered/Resolved]
  - Swelling face [Not Recovered/Not Resolved]

NARRATIVE: CASE EVENT DATE: 20141005
